FAERS Safety Report 4465148-4 (Version None)
Quarter: 2004Q4

REPORT INFORMATION
  Report Type: 
  Country: None (occurrence: None)
  Receive Date: 20041004
  Receipt Date: 20040727
  Transmission Date: 20050328
  Serious: Yes (Hospitalization)
  Sender: FDA-Public Use
  Company Number: JP-BRISTOL-MYERS SQUIBB COMPANY-12657425

PATIENT
  Age: 41 Year
  Sex: Male

DRUGS (6)
  1. MEVALOTIN [Suspect]
     Indication: HYPERLIPIDAEMIA
     Route: 048
     Dates: start: 20040713, end: 20040723
  2. ZYLORIC [Concomitant]
     Indication: GOUT
     Route: 048
     Dates: start: 20040713, end: 20040723
  3. NORVASC [Concomitant]
     Indication: HYPERTENSION
     Dates: start: 20040713, end: 20040723
  4. URSO [Concomitant]
     Indication: CHRONIC HEPATITIS
     Dates: start: 20040713, end: 20040723
  5. GLYCYRON [Concomitant]
     Indication: CHRONIC HEPATITIS
     Dates: start: 20040713, end: 20040723
  6. NEO-MINOPHAGEN C [Concomitant]
     Indication: CHRONIC HEPATITIS
     Dates: start: 20040713, end: 20040723

REACTIONS (2)
  - BLOOD CREATINE PHOSPHOKINASE INCREASED [None]
  - RHABDOMYOLYSIS [None]
